FAERS Safety Report 5080908-7 (Version None)
Quarter: 2006Q3

REPORT INFORMATION
  Report Type: 
  Country: None (occurrence: None)
  Receive Date: 20060810
  Receipt Date: 20060802
  Transmission Date: 20061208
  Serious: Yes (Hospitalization, Disabling, Other)
  Sender: FDA-Public Use
  Company Number: 2006072251

PATIENT
  Age: 29 Year
  Sex: Female

DRUGS (1)
  1. DOSTINEX [Suspect]
     Indication: DRUG USE FOR UNKNOWN INDICATION
     Dosage: 1 TOTAL, ORAL
     Route: 048

REACTIONS (8)
  - ALCOHOLISM [None]
  - DELIRIUM [None]
  - DELUSION [None]
  - ERYTHEMA [None]
  - FEELING HOT [None]
  - HYPERTENSION [None]
  - OEDEMA [None]
  - TACHYCARDIA [None]
